FAERS Safety Report 19762184 (Version 1)
Quarter: 2021Q3

REPORT INFORMATION
  Report Type: Spontaneous
  Country: CA (occurrence: CA)
  Receive Date: 20210827
  Receipt Date: 20210827
  Transmission Date: 20211014
  Serious: Yes (Hospitalization)
  Sender: FDA-Public Use
  Company Number: CA-009507513-2108CAN005923

PATIENT
  Age: 85 Year
  Sex: Female
  Weight: 49 kg

DRUGS (18)
  1. ACETAMINOPHEN. [Concomitant]
     Active Substance: ACETAMINOPHEN
     Dosage: DOSAGE FORM NOT SPECIFIED
  2. CHOLECALCIFEROL [Concomitant]
     Active Substance: CHOLECALCIFEROL
     Dosage: DOSAGE FORM NOT SPECIFIED
  3. DILTIAZEM. [Concomitant]
     Active Substance: DILTIAZEM
  4. HYDROMORPHONE [Concomitant]
     Active Substance: HYDROMORPHONE
  5. CALCIUM CARBONATE. [Concomitant]
     Active Substance: CALCIUM CARBONATE
     Dosage: DOSAGE FORM NOT SPECIFIED
  6. INVANZ [Suspect]
     Active Substance: ERTAPENEM SODIUM
     Dosage: 1000 MILLIGRAM, 1 EVERY 24 HOURS
     Route: 042
  7. MEROPENEM. [Suspect]
     Active Substance: MEROPENEM
     Dosage: DOSAGE FORM REPORTED AS POWDER FOR SOLUTION INTRAVENOUS
  8. CYANOCOBALAMIN. [Concomitant]
     Active Substance: CYANOCOBALAMIN
     Dosage: DOSAGE FORM NOT SPECIFIED
  9. DICLOFENAC [Concomitant]
     Active Substance: DICLOFENAC
  10. HEPARIN SODIUM. [Concomitant]
     Active Substance: HEPARIN SODIUM
  11. LORAZEPAM. [Concomitant]
     Active Substance: LORAZEPAM
  12. PANTOPRAZOLE [Concomitant]
     Active Substance: PANTOPRAZOLE
     Dosage: DOSAGE FORM REPORTED AS POWDER FOR SOLUTION INTRAVENOUS
  13. SALBUTAMOL [Concomitant]
     Active Substance: ALBUTEROL
     Dosage: DOSAGE FORM REPORTED AS LIQUID INTRAVENOUS
  14. SYMBICORT [Concomitant]
     Active Substance: BUDESONIDE\FORMOTEROL FUMARATE DIHYDRATE
     Dosage: DOSATE FORM NOT SPECIFIED
     Route: 065
  15. ROSUVASTATIN. [Concomitant]
     Active Substance: ROSUVASTATIN
     Route: 065
  16. CEFTRIAXONE. [Suspect]
     Active Substance: CEFTRIAXONE
     Dosage: DOSAGE FORM REPORTED AS POWDER FOR SOLUTION INTRAMUSCULAR
  17. IRON SULPHATE [Concomitant]
     Active Substance: FERROUS SULFATE ANHYDROUS
     Dosage: DOSAGE FORM NOT SPECIFIED
  18. PREDNISONE. [Concomitant]
     Active Substance: PREDNISONE
     Dosage: DOSAGE FORM NOT SPECIFIED

REACTIONS (2)
  - Clostridium difficile colitis [Recovered/Resolved]
  - Disease recurrence [Recovered/Resolved]
